FAERS Safety Report 8102428 (Version 2)
Quarter: 2013Q4

REPORT INFORMATION
  Report Type: Spontaneous
  Country: FR (occurrence: FR)
  Receive Date: 20110823
  Receipt Date: 20131004
  Transmission Date: 20140711
  Serious: Yes (Other)
  Sender: FDA-Public Use
  Company Number: PHHY2011FR74349

PATIENT
  Age: 63 Year
  Sex: Female

DRUGS (6)
  1. STALEVO [Suspect]
     Indication: PARKINSON^S DISEASE
     Dosage: 6 DF, DAILY
     Dates: end: 20100923
  2. MODOPAR [Suspect]
     Indication: PARKINSON^S DISEASE
     Dosage: 100/25 MG
     Dates: end: 20100923
  3. REQUIP LP [Suspect]
     Indication: PARKINSON^S DISEASE
     Dosage: 5 MG, QD
     Dates: end: 20100923
  4. AZILECT [Suspect]
     Dosage: 1 ML, QD
     Dates: start: 20110208
  5. DOMPERIDONE [Concomitant]
     Dosage: UNK UKN, UNK
  6. TAHOR [Concomitant]
     Dosage: UNK UKN, UNK

REACTIONS (1)
  - Metastatic malignant melanoma [Not Recovered/Not Resolved]
